FAERS Safety Report 15215256 (Version 1)
Quarter: 2018Q3

REPORT INFORMATION
  Report Type: Spontaneous
  Country: IT (occurrence: IT)
  Receive Date: 20180730
  Receipt Date: 20180730
  Transmission Date: 20181010
  Serious: Yes (Other)
  Sender: FDA-Public Use
  Company Number: IT-IMPAX LABORATORIES, INC-2018-IPXL-02498

PATIENT
  Age: 56 Year
  Sex: Male

DRUGS (3)
  1. EPIRUBICIN HYDROCHLORIDE. [Suspect]
     Active Substance: EPIRUBICIN HYDROCHLORIDE
     Indication: HEPATOCELLULAR CARCINOMA
     Dosage: 50 MG, INFUSED, UNK
     Route: 050
  2. EPIRUBICIN HYDROCHLORIDE. [Suspect]
     Active Substance: EPIRUBICIN HYDROCHLORIDE
     Dosage: 25 MG, UNK
     Route: 065
  3. LIPIODOL ETHYLIQUE FLUIDE [Concomitant]
     Indication: HEPATOCELLULAR CARCINOMA
     Dosage: UNK
     Route: 065

REACTIONS (8)
  - Neutropenia [Recovered/Resolved]
  - Abdominal pain [Recovered/Resolved]
  - Hepatic enzyme increased [Recovered/Resolved]
  - Thrombocytopenia [Recovered/Resolved]
  - Pleural effusion [Recovering/Resolving]
  - Anaemia [Recovered/Resolved]
  - Skin reaction [Recovered/Resolved]
  - Alopecia [Unknown]
